FAERS Safety Report 20006588 (Version 5)
Quarter: 2022Q2

REPORT INFORMATION
  Report Type: Report from Study
  Country: ES (occurrence: ES)
  Receive Date: 20211028
  Receipt Date: 20220609
  Transmission Date: 20220721
  Serious: Yes (Hospitalization)
  Sender: FDA-Public Use
  Company Number: ES-NOVARTISPH-NVSC2021ES243997

PATIENT
  Age: 50 Year
  Sex: Male
  Weight: 110 kg

DRUGS (9)
  1. NAPORAFENIB [Suspect]
     Active Substance: NAPORAFENIB
     Indication: Non-small cell lung cancer
     Dosage: 400 MG, BID
     Route: 048
     Dates: start: 20210917, end: 20211014
  2. TRAMETINIB [Suspect]
     Active Substance: TRAMETINIB
     Indication: Non-small cell lung cancer
     Dosage: 0.5 MG, QD
     Route: 048
     Dates: start: 20210917, end: 20211014
  3. ALLOPURINOL [Concomitant]
     Active Substance: ALLOPURINOL
     Indication: Arteritis
     Dosage: 300 MG, QD
     Route: 048
     Dates: start: 202101
  4. AZATHIOPRINE SODIUM [Concomitant]
     Active Substance: AZATHIOPRINE SODIUM
     Indication: Arteritis
     Dosage: 50 MG, BID
     Route: 048
     Dates: start: 202102
  5. HYDROCHLOROTHIAZIDE [Concomitant]
     Active Substance: HYDROCHLOROTHIAZIDE
     Indication: Prophylaxis
     Dosage: UNK MG, QD
     Route: 048
     Dates: start: 20210909
  6. LORAZEPAM [Concomitant]
     Active Substance: LORAZEPAM
     Indication: Anxiety
     Dosage: 1 MG, PRN
     Route: 048
     Dates: start: 202109
  7. CEFTRIAXONE [Concomitant]
     Active Substance: CEFTRIAXONE
     Indication: Urinary tract infection
     Dosage: UNK
     Route: 065
  8. DAPTOMYCIN [Concomitant]
     Active Substance: DAPTOMYCIN
     Indication: Bacteraemia
     Dosage: UNK
     Route: 065
  9. AMLODIPINE BESYLATE\OLMESARTAN MEDOXOMIL [Concomitant]
     Active Substance: AMLODIPINE BESYLATE\OLMESARTAN MEDOXOMIL
     Indication: Arteritis
     Dosage: 20 MG, QD
     Route: 048
     Dates: start: 20210909

REACTIONS (2)
  - Thrombocytopenia [Not Recovered/Not Resolved]
  - Anaemia [Not Recovered/Not Resolved]

NARRATIVE: CASE EVENT DATE: 20211021
